FAERS Safety Report 18963915 (Version 1)
Quarter: 2021Q1

REPORT INFORMATION
  Report Type: Spontaneous
  Country: US (occurrence: US)
  Receive Date: 20210303
  Receipt Date: 20210303
  Transmission Date: 20210420
  Serious: No
  Sender: FDA-Public Use
  Company Number: US-AMNEAL PHARMACEUTICALS-2020-AMRX-00152

PATIENT
  Sex: Female

DRUGS (3)
  1. RYTARY [Suspect]
     Active Substance: CARBIDOPA\LEVODOPA
     Indication: PARKINSON^S DISEASE
     Dosage: UNK, 23.75 MG/95MG
     Route: 065
  2. RYTARY [Suspect]
     Active Substance: CARBIDOPA\LEVODOPA
     Dosage: 23.75 MG/95MG, 3 CAPSULES, TID
     Route: 048
  3. RYTARY [Suspect]
     Active Substance: CARBIDOPA\LEVODOPA
     Dosage: 23.75 MG/95MG, 2 CAPSULES, TID
     Route: 048

REACTIONS (5)
  - Gastrooesophageal reflux disease [Unknown]
  - Intentional product use issue [Unknown]
  - Abdominal discomfort [Unknown]
  - Dizziness [Unknown]
  - Migraine [Unknown]
